FAERS Safety Report 15880804 (Version 1)
Quarter: 2019Q1

REPORT INFORMATION
  Report Type: Report from Study
  Country: AR (occurrence: AR)
  Receive Date: 20190128
  Receipt Date: 20190128
  Transmission Date: 20190417
  Serious: Yes (Death, Hospitalization)
  Sender: FDA-Public Use
  Company Number: AR-BAYER-2019-016054

PATIENT
  Age: 49 Year
  Sex: Female

DRUGS (3)
  1. SORAFENIB [Suspect]
     Active Substance: SORAFENIB
     Indication: METASTASES TO LUNG
  2. SORAFENIB [Suspect]
     Active Substance: SORAFENIB
     Indication: METASTASES TO BONE
  3. SORAFENIB [Suspect]
     Active Substance: SORAFENIB
     Indication: THYROID CANCER METASTATIC
     Dosage: DAILY DOSE 800 MG
     Route: 048

REACTIONS (2)
  - Cardiac failure congestive [Recovering/Resolving]
  - Sudden cardiac death [Fatal]
